FAERS Safety Report 9099654 (Version 1)
Quarter: 2013Q1

REPORT INFORMATION
  Report Type: Spontaneous
  Country: BG (occurrence: BG)
  Receive Date: 20130214
  Receipt Date: 20130214
  Transmission Date: 20140127
  Serious: Yes (Hospitalization)
  Sender: FDA-Public Use
  Company Number: BG-ASTRAZENECA-2013SE08286

PATIENT
  Age: 50 Year
  Sex: Female

DRUGS (2)
  1. GOSERELIN [Suspect]
     Indication: BREAST CANCER
     Route: 058
  2. TAMOXIFEN [Suspect]
     Indication: BREAST CANCER
     Route: 048

REACTIONS (2)
  - Cognitive disorder [Unknown]
  - Macular degeneration [Unknown]
